FAERS Safety Report 5394576-8 (Version None)
Quarter: 2007Q3

REPORT INFORMATION
  Report Type: 
  Country: None (occurrence: None)
  Receive Date: 20070723
  Receipt Date: 20070719
  Transmission Date: 20080115
  Serious: Yes (Disabling)
  Sender: FDA-Public Use
  Company Number: DE-SHR-DE-2007-021759

PATIENT
  Sex: Male

DRUGS (6)
  1. MAGNEVIST [Suspect]
     Dosage: 42 ML, 1 DOSE
     Dates: start: 20050828, end: 20050828
  2. MAGNEVIST [Suspect]
     Dosage: 16 ML, 1 DOSE
     Dates: start: 20060404, end: 20060404
  3. OMNISCAN [Suspect]
     Dosage: 20 ML, 1 DOSE
     Dates: start: 20060208, end: 20060208
  4. OMNISCAN [Suspect]
     Dosage: 15 ML, 1 DOSE
     Dates: start: 20060907, end: 20060907
  5. PROHANCE [Suspect]
     Dosage: 14 ML, 1 DOSE
     Dates: start: 20060303, end: 20060303
  6. DOTAREM [Suspect]
     Dosage: 15 ML, 1 DOSE
     Dates: start: 20060704, end: 20060704

REACTIONS (1)
  - NEPHROGENIC SYSTEMIC FIBROSIS [None]
